FAERS Safety Report 6146027-3 (Version None)
Quarter: 2009Q2

REPORT INFORMATION
  Report Type: 
  Country: None (occurrence: None)
  Receive Date: 20090407
  Receipt Date: 20090327
  Transmission Date: 20091009
  Serious: Yes (Hospitalization)
  Sender: FDA-Public Use
  Company Number: US-ELI_LILLY_AND_COMPANY-US200902006760

PATIENT
  Sex: Female

DRUGS (13)
  1. FORTEO [Suspect]
     Indication: OSTEOPOROSIS
     Dosage: 20 UG, UNK
     Dates: start: 20060101
  2. FORTEO [Suspect]
     Dosage: 20 UG, UNK
     Dates: start: 20060101
  3. PLAVIX [Concomitant]
     Dosage: 75 MG, DAILY (1/D)
  4. COLACE [Concomitant]
     Dosage: 100 MG, 2/D
  5. DONEPEZIL HYDROCHLORIDE [Concomitant]
  6. HEPARIN [Concomitant]
     Dosage: 5000 IU, 2/D
  7. HYDROCHLOROTHIAZIDE [Concomitant]
     Dosage: 12.5 MG, DAILY (1/D)
  8. LIDOCAINE [Concomitant]
     Dosage: EVERY 12 HOURS, AS NEEDED
  9. METOPROLOL [Concomitant]
     Dosage: 100 MG, DAILY (1/D)
  10. PROTONIX [Concomitant]
     Dosage: UNK, DAILY (1/D)
  11. POTASSIUM CHLORIDE [Concomitant]
     Dosage: 20, DAILY (1/D)
  12. TYLENOL                                 /SCH/ [Concomitant]
     Dosage: 650 MG, AS NEEDED
  13. MORPHINE SULFATE [Concomitant]
     Dosage: AS NEEDED EVERY FOUR HOURS

REACTIONS (3)
  - MOBILITY DECREASED [None]
  - SURGERY [None]
  - THINKING ABNORMAL [None]
